FAERS Safety Report 9808259 (Version 2)
Quarter: 2014Q1

REPORT INFORMATION
  Report Type: Spontaneous
  Country: US (occurrence: None)
  Receive Date: 20140108
  Receipt Date: 20140110
  Transmission Date: 20141002
  Serious: Yes (Death, Other)
  Sender: FDA-Public Use
  Company Number: ADR-2014-00032

PATIENT
  Age: 70 Year
  Sex: Male

DRUGS (1)
  1. BACLOFEN [Suspect]
     Indication: MUSCLE SPASTICITY
     Dosage: 1,124.7 MCG/DAY

REACTIONS (3)
  - Pneumonia [None]
  - Condition aggravated [None]
  - Cerebrovascular accident [None]
